FAERS Safety Report 20309812 (Version 1)
Quarter: 2022Q1

REPORT INFORMATION
  Report Type: Spontaneous
  Country: FR (occurrence: FR)
  Receive Date: 20220107
  Receipt Date: 20220107
  Transmission Date: 20220423
  Serious: Yes (Other)
  Sender: FDA-Public Use
  Company Number: None

PATIENT
  Age: 37 Year
  Sex: Male
  Weight: 75 kg

DRUGS (6)
  1. LYRICA [Suspect]
     Active Substance: PREGABALIN
     Indication: Neuralgia
     Dosage: UNK
     Dates: end: 20210912
  2. COCAINE [Suspect]
     Active Substance: COCAINE
     Dosage: UNK
     Route: 045
     Dates: start: 20210912, end: 20210912
  3. OXAZEPAM [Suspect]
     Active Substance: OXAZEPAM
     Indication: Poisoning deliberate
     Dosage: 20 DF, SINGLE
     Route: 048
     Dates: start: 20210912, end: 20210912
  4. NORDAZEPAM [Suspect]
     Active Substance: NORDAZEPAM
     Indication: Poisoning deliberate
     Dosage: UNK
     Route: 048
     Dates: start: 20210912, end: 20210912
  5. CANNABIS SATIVA SUBSP. INDICA TOP [Suspect]
     Active Substance: CANNABIS SATIVA SUBSP. INDICA TOP
     Dosage: 6 TO 7 JOINTS MINIMUM, DAILY
     Route: 055
  6. METHADONE [Suspect]
     Active Substance: METHADONE HYDROCHLORIDE
     Indication: Poisoning deliberate
     Dosage: 80 MG (BY INTAKE)
     Route: 048
     Dates: start: 2009, end: 20210912

REACTIONS (5)
  - Drug abuse [Not Recovered/Not Resolved]
  - Suicidal ideation [Recovered/Resolved]
  - Poisoning deliberate [Recovered/Resolved]
  - Agitation [Recovered/Resolved]
  - Somnolence [Recovered/Resolved]

NARRATIVE: CASE EVENT DATE: 20210905
